FAERS Safety Report 16817756 (Version 1)
Quarter: 2019Q3

REPORT INFORMATION
  Report Type: Spontaneous
  Country: AU (occurrence: AU)
  Receive Date: 20190917
  Receipt Date: 20190917
  Transmission Date: 20191005
  Serious: Yes (Other)
  Sender: FDA-Public Use
  Company Number: AU-PFIZER INC-2019386618

PATIENT
  Age: 3 Week
  Weight: 2.25 kg

DRUGS (7)
  1. OXYGEN. [Concomitant]
     Active Substance: OXYGEN
     Dosage: UNK
  2. SUCCINYLCHOLINE CHLORIDE. [Suspect]
     Active Substance: SUCCINYLCHOLINE CHLORIDE
     Dosage: 5 MG, UNK
  3. ATROPINE. [Concomitant]
     Active Substance: ATROPINE
     Dosage: UNK
  4. ATROPINE. [Concomitant]
     Active Substance: ATROPINE
     Dosage: 0.05 MG, UNK
     Route: 042
  5. NEOSTIGMINE. [Concomitant]
     Active Substance: NEOSTIGMINE METHYLSULFATE
     Dosage: 80 MG, UNK
  6. ATRACURIUM [Concomitant]
     Active Substance: ATRACURIUM
     Dosage: 0.8 MG, UNK
  7. HALOTHANE. [Concomitant]
     Active Substance: HALOTHANE
     Dosage: UNK

REACTIONS (1)
  - Apnoea [Unknown]
